FAERS Safety Report 9934963 (Version 1)
Quarter: 2014Q1

REPORT INFORMATION
  Report Type: Report from Study
  Country: US (occurrence: US)
  Receive Date: 20140228
  Receipt Date: 20140228
  Transmission Date: 20141002
  Serious: Yes (Hospitalization, Other)
  Sender: FDA-Public Use
  Company Number: PHEH2014US003918

PATIENT
  Sex: Female
  Weight: 17.2 kg

DRUGS (4)
  1. ILARIS [Suspect]
     Indication: CRYOPYRIN ASSOCIATED PERIODIC SYNDROME
     Dosage: 30 MG, UNK
     Route: 058
  2. ILARIS [Suspect]
     Dosage: 70 MG, EVERY 8 WEEKS
     Route: 058
     Dates: start: 20140109
  3. MIRALAX [Concomitant]
     Dosage: UNK
     Route: 048
  4. MULTI-VIT [Concomitant]
     Dosage: UNK
     Route: 048

REACTIONS (3)
  - Pneumonia [Recovered/Resolved]
  - Amyloidosis [Unknown]
  - Malaise [Unknown]
